FAERS Safety Report 9972113 (Version 1)
Quarter: 2014Q1

REPORT INFORMATION
  Report Type: Report from Study
  Country: US (occurrence: US)
  Receive Date: 20140306
  Receipt Date: 20140306
  Transmission Date: 20141002
  Serious: No
  Sender: FDA-Public Use
  Company Number: US-ABBVIE-13P-163-1151294-00

PATIENT
  Age: 45 Year
  Sex: Female

DRUGS (4)
  1. HUMIRA [Suspect]
     Indication: COLITIS ULCERATIVE
     Dates: start: 20130627
  2. ASACOL HD [Concomitant]
     Indication: COLITIS ULCERATIVE
  3. SYNTHROID [Concomitant]
     Indication: THYROID DISORDER
     Dosage: .05 MILLIGRAMS DAILY
  4. OMEPRAZOLE [Concomitant]
     Indication: GASTROOESOPHAGEAL REFLUX DISEASE
     Dosage: 40 MILLIGRAMS DAILY

REACTIONS (1)
  - Injection site pain [Recovering/Resolving]
